FAERS Safety Report 14419805 (Version 4)
Quarter: 2018Q2

REPORT INFORMATION
  Report Type: Spontaneous
  Country: FR (occurrence: FR)
  Receive Date: 20180122
  Receipt Date: 20180523
  Transmission Date: 20180711
  Serious: Yes (Death)
  Sender: FDA-Public Use
  Company Number: FR-PFIZER INC-2018026016

PATIENT
  Age: 72 Year
  Sex: Female

DRUGS (5)
  1. DOCETAXEL. [Suspect]
     Active Substance: DOCETAXEL
     Indication: INVASIVE DUCTAL BREAST CARCINOMA
     Dosage: 125.25 MG, UNK
     Route: 041
     Dates: start: 20171219, end: 20171219
  2. HERCEPTIN [Suspect]
     Active Substance: TRASTUZUMAB
     Indication: INVASIVE DUCTAL BREAST CARCINOMA
     Dosage: 536 MG, UNK
     Route: 042
     Dates: start: 20171219, end: 20171219
  3. AUGMENTIN [Concomitant]
     Active Substance: AMOXICILLIN\CLAVULANATE POTASSIUM
     Indication: SUBCUTANEOUS ABSCESS
     Dosage: 3 G, UNK
     Route: 042
     Dates: start: 20171211, end: 20171225
  4. OFLOCET /00731801/ [Concomitant]
     Active Substance: OFLOXACIN
     Indication: SUBCUTANEOUS ABSCESS
     Dosage: 400 MG, UNK
     Route: 048
     Dates: start: 20171215, end: 20171225
  5. CARBOPLATIN. [Suspect]
     Active Substance: CARBOPLATIN
     Indication: INVASIVE DUCTAL BREAST CARCINOMA
     Dosage: 669.25 MG, UNK
     Route: 042
     Dates: start: 20171219, end: 20171219

REACTIONS (1)
  - Colitis ischaemic [Fatal]

NARRATIVE: CASE EVENT DATE: 20171223
